FAERS Safety Report 7217597-9 (Version None)
Quarter: 2011Q1

REPORT INFORMATION
  Report Type: 
  Country: None (occurrence: None)
  Receive Date: 20110110
  Receipt Date: 20101231
  Transmission Date: 20110831
  Serious: Yes (Death)
  Sender: FDA-Public Use
  Company Number: US-PFIZER INC-2011002394

PATIENT
  Age: 64 Year
  Sex: Male

DRUGS (6)
  1. TEMAZEPAM [Suspect]
     Route: 048
  2. HYDROXYZINE HCL [Suspect]
     Route: 048
  3. CITALOPRAM [Suspect]
     Route: 048
  4. ZOLPIDEM [Suspect]
     Dosage: UNK
     Route: 048
  5. TENORETIC 100 [Suspect]
     Route: 048
  6. POTASSIUM CHLORIDE [Suspect]
     Route: 048

REACTIONS (2)
  - TOXICITY TO VARIOUS AGENTS [None]
  - COMPLETED SUICIDE [None]
